FAERS Safety Report 7762305-6 (Version None)
Quarter: 2011Q3

REPORT INFORMATION
  Report Type: 
  Country: None (occurrence: None)
  Receive Date: 20110920
  Receipt Date: 20110915
  Transmission Date: 20111222
  Serious: Yes (Death)
  Sender: FDA-Public Use
  Company Number: AU-ROCHE-802820

PATIENT
  Age: 24 Year
  Sex: Male

DRUGS (2)
  1. MORPHINE HCL ELIXIR [Suspect]
     Route: 065
  2. DIAZEPAM [Suspect]
     Route: 065

REACTIONS (3)
  - DRUG DEPENDENCE [None]
  - OVERDOSE [None]
  - AGGRESSION [None]
